FAERS Safety Report 23341033 (Version 1)
Quarter: 2023Q4

REPORT INFORMATION
  Report Type: Spontaneous
  Country: SK (occurrence: SK)
  Receive Date: 20231227
  Receipt Date: 20231227
  Transmission Date: 20240109
  Serious: Yes (Hospitalization)
  Sender: FDA-Public Use
  Company Number: SK-SA-SAC20231225000320

PATIENT
  Age: 82 Year
  Sex: Female

DRUGS (2)
  1. PRALUENT [Suspect]
     Active Substance: ALIROCUMAB
     Indication: Lipid metabolism disorder
     Dosage: 75 MG
     Dates: start: 201809
  2. PRALUENT [Suspect]
     Active Substance: ALIROCUMAB
     Dosage: 150 MG
     Route: 065
     Dates: start: 201904, end: 20230418

REACTIONS (5)
  - Urticaria chronic [Recovered/Resolved]
  - Swelling face [Recovered/Resolved]
  - Condition aggravated [Recovered/Resolved]
  - Pruritus [Recovered/Resolved]
  - Drug hypersensitivity [Recovered/Resolved]

NARRATIVE: CASE EVENT DATE: 20220101
